FAERS Safety Report 20176836 (Version 2)
Quarter: 2021Q4

REPORT INFORMATION
  Report Type: Report from Study
  Country: BR (occurrence: BR)
  Receive Date: 20211213
  Receipt Date: 20211227
  Transmission Date: 20220303
  Serious: Yes (Other)
  Sender: FDA-Public Use
  Company Number: BR-NOVARTISPH-NVSC2021BR284260

PATIENT
  Age: 32 Year
  Sex: Male

DRUGS (1)
  1. TRILEPTAL [Suspect]
     Active Substance: OXCARBAZEPINE
     Indication: Product used for unknown indication
     Dosage: 300 MG, (3 PILLS A DAY) (STARTED 15 OR 20 YRS AGO)
     Route: 065

REACTIONS (5)
  - Epilepsy [Recovered/Resolved]
  - Disorientation [Unknown]
  - Syncope [Unknown]
  - Stress [Recovering/Resolving]
  - Somnolence [Unknown]

NARRATIVE: CASE EVENT DATE: 20210901
